FAERS Safety Report 5319709-0 (Version None)
Quarter: 2007Q2

REPORT INFORMATION
  Report Type: 
  Country: None (occurrence: None)
  Receive Date: 20070503
  Receipt Date: 20070423
  Transmission Date: 20071010
  Serious: Yes (Other)
  Sender: FDA-Public Use
  Company Number: 6032530

PATIENT
  Age: 35 Year
  Sex: Female

DRUGS (2)
  1. METFORMIN (TABLET) (METFORMIN) [Suspect]
     Indication: GESTATIONAL DIABETES
     Dosage: ORAL, FROM WEEK 34 OF GESTATION
     Route: 048
  2. INSULIN (INSULIN) [Concomitant]

REACTIONS (11)
  - DIABETES MELLITUS INADEQUATE CONTROL [None]
  - DIABETES MELLITUS NON-INSULIN-DEPENDENT [None]
  - DRUG EXPOSURE DURING PREGNANCY [None]
  - GESTATIONAL DIABETES [None]
  - HYPERINSULINAEMIA [None]
  - INFERTILITY FEMALE [None]
  - INSULIN RESISTANCE [None]
  - LARGE FOR DATES BABY [None]
  - PREGNANCY [None]
  - PREMATURE BABY [None]
  - TOOTH ABSCESS [None]
